FAERS Safety Report 13875887 (Version 2)
Quarter: 2017Q4

REPORT INFORMATION
  Report Type: Spontaneous
  Country: JP (occurrence: JP)
  Receive Date: 20170817
  Receipt Date: 20171025
  Transmission Date: 20180320
  Serious: Yes (Hospitalization)
  Sender: FDA-Public Use
  Company Number: JP-AMGEN-JPNSP2017099752

PATIENT
  Age: 78 Year
  Sex: Male
  Weight: 36 kg

DRUGS (22)
  1. HISHIPHAGEN C [Concomitant]
     Indication: PRURITUS
     Dosage: 20 ML, 3 TIMES/WK
     Route: 042
     Dates: start: 20160701
  2. NEOAMIYU [Concomitant]
     Active Substance: AMINO ACIDS
     Indication: AMINO ACID LEVEL DECREASED
     Dosage: 200 ML, 3X/WEEK
     Route: 041
     Dates: start: 20161003
  3. ACARDI [Concomitant]
     Indication: CARDIAC FAILURE CHRONIC
     Dosage: 1.25 MG, QD
     Route: 048
     Dates: start: 20161130
  4. NESP [Suspect]
     Active Substance: DARBEPOETIN ALFA
     Dosage: 60 MUG, QWK
     Route: 042
     Dates: start: 20170428, end: 20170428
  5. L-CARNITINE [Concomitant]
     Active Substance: LEVOCARNITINE
     Indication: CARNITINE DEFICIENCY
     Dosage: 1000 MG, 3 TIMES/WK
     Route: 042
     Dates: start: 20161130
  6. ALLEGRA [Concomitant]
     Active Substance: FEXOFENADINE HYDROCHLORIDE
     Indication: PRURITUS
     Dosage: 60 MG, QD
     Route: 048
  7. NITOROL [Concomitant]
     Active Substance: ISOSORBIDE DINITRATE
     Indication: ANGINA PECTORIS
     Dosage: 20 MG, BID
     Route: 048
     Dates: start: 20170322
  8. DOPS [Concomitant]
     Active Substance: DROXIDOPA
     Indication: DIALYSIS RELATED COMPLICATION
     Dosage: 200 MG, 3 TIMES/WK
     Route: 048
     Dates: start: 20161231
  9. ARTIST [Concomitant]
     Active Substance: CARVEDILOL
     Indication: CARDIAC FAILURE CHRONIC
     Dosage: 2.5 MG, QD
     Route: 048
  10. TAKELDA [Concomitant]
     Active Substance: ASPIRIN\LANSOPRAZOLE
     Indication: CEREBRAL ISCHAEMIA
     Dosage: 1 DF, QD
     Route: 048
     Dates: start: 20160921
  11. OXAROL [Concomitant]
     Active Substance: MAXACALCITOL
     Indication: HYPERPARATHYROIDISM SECONDARY
     Dosage: 2.5 MG, QWK
     Route: 042
     Dates: start: 20170116
  12. INTRALIPOS [Concomitant]
     Active Substance: SOYBEAN OIL
     Indication: MALNUTRITION
     Dosage: 50 ML, 3X/WEEK
     Route: 041
     Dates: start: 20170419
  13. THYRADIN S [Concomitant]
     Active Substance: LEVOTHYROXINE SODIUM
     Indication: HYPOTHYROIDISM
     Dosage: 75 MG, QD
     Route: 048
     Dates: start: 20161019
  14. AMEZINIUM METILSULFATE [Concomitant]
     Active Substance: AMEZINIUM METILSULFATE
     Indication: DIALYSIS RELATED COMPLICATION
     Dosage: 10 MG, 3 TIMES/WK
     Route: 048
     Dates: start: 20161231
  15. NESP [Suspect]
     Active Substance: DARBEPOETIN ALFA
     Dosage: 40 MUG, QD
     Route: 042
     Dates: start: 20170412, end: 20170412
  16. NESP [Suspect]
     Active Substance: DARBEPOETIN ALFA
     Dosage: 40 MUG, QD
     Route: 042
     Dates: start: 20170421, end: 20170421
  17. NESP [Suspect]
     Active Substance: DARBEPOETIN ALFA
     Dosage: 80 MUG, QWK
     Route: 042
     Dates: start: 20170505
  18. PURSENNID [Concomitant]
     Active Substance: SENNOSIDES A AND B
     Indication: CONSTIPATION
     Dosage: 24 MG, QD
     Route: 048
  19. CALTAN [Concomitant]
     Active Substance: CALCIUM CARBONATE
     Indication: HYPERPHOSPHATAEMIA
     Dosage: 500 MG, TID
     Route: 048
     Dates: start: 20170322, end: 20170718
  20. NESP [Suspect]
     Active Substance: DARBEPOETIN ALFA
     Indication: NEPHROGENIC ANAEMIA
     Dosage: UNK UNK, QWK
     Route: 042
     Dates: start: 201606
  21. LASIX [Concomitant]
     Active Substance: FUROSEMIDE
     Indication: HYPERTENSION
     Dosage: 80 MG, BID
     Route: 048
  22. MUCOSTA [Concomitant]
     Active Substance: REBAMIPIDE
     Indication: GASTRIC ULCER
     Dosage: 100 MG, TID
     Route: 048

REACTIONS (2)
  - Nephrogenic anaemia [Recovering/Resolving]
  - Drug ineffective [Recovering/Resolving]

NARRATIVE: CASE EVENT DATE: 20170619
